FAERS Safety Report 9837058 (Version 2)
Quarter: 2014Q2

REPORT INFORMATION
  Report Type: Report from Study
  Country: ID (occurrence: ID)
  Receive Date: 20140123
  Receipt Date: 20140630
  Transmission Date: 20141212
  Serious: Yes (Death)
  Sender: FDA-Public Use
  Company Number: ID-ROCHE-1338084

PATIENT
  Age: 56 Year
  Sex: Female

DRUGS (1)
  1. AVASTIN [Suspect]
     Indication: COLORECTAL CANCER
     Route: 065
     Dates: start: 20110825

REACTIONS (1)
  - Death [Fatal]
